FAERS Safety Report 4467332-2 (Version None)
Quarter: 2004Q4

REPORT INFORMATION
  Report Type: 
  Country: None (occurrence: None)
  Receive Date: 20041006
  Receipt Date: 20040924
  Transmission Date: 20050328
  Serious: Yes (Other)
  Sender: FDA-Public Use
  Company Number: ESWYE064324SEP04

PATIENT
  Sex: Male

DRUGS (4)
  1. ENBREL [Suspect]
     Indication: RHEUMATOID ARTHRITIS
     Route: 058
     Dates: start: 20040201, end: 20040301
  2. ENBREL [Suspect]
     Route: 058
     Dates: start: 20030807, end: 20031201
  3. DEFLAZACORT [Concomitant]
  4. CELECOXIB [Concomitant]

REACTIONS (1)
  - PULMONARY FIBROSIS [None]
